FAERS Safety Report 19743825 (Version 1)
Quarter: 2021Q3

REPORT INFORMATION
  Report Type: Other
  Country: CN (occurrence: CN)
  Receive Date: 20210825
  Receipt Date: 20210825
  Transmission Date: 20211014
  Serious: Yes (Other)
  Sender: FDA-Public Use
  Company Number: CN-ROCHE-2895357

PATIENT

DRUGS (3)
  1. RITUXIMAB. [Suspect]
     Active Substance: RITUXIMAB
     Indication: IMMUNE THROMBOCYTOPENIA
     Route: 065
  2. METHYLPREDNISOLONE SODIUM SUCCINATE. [Suspect]
     Active Substance: METHYLPREDNISOLONE SODIUM SUCCINATE
     Indication: ALLERGY PROPHYLAXIS
     Dosage: 1 TO 2 MG/KG
     Route: 041
  3. DEXAMETHASONE. [Suspect]
     Active Substance: DEXAMETHASONE
     Indication: ALLERGY PROPHYLAXIS
     Route: 041

REACTIONS (7)
  - Laryngeal oedema [Unknown]
  - Drug eruption [Unknown]
  - Dyspnoea [Unknown]
  - Off label use [Unknown]
  - Headache [Unknown]
  - Vomiting [Unknown]
  - Blood pressure increased [Unknown]
